FAERS Safety Report 9512467 (Version 2)
Quarter: 2014Q1

REPORT INFORMATION
  Report Type: Spontaneous
  Country: US (occurrence: None)
  Receive Date: 20130305
  Receipt Date: 20140306
  Transmission Date: 20141002
  Serious: Yes (Other)
  Sender: FDA-Public Use
  Company Number: 163-21880-12103204

PATIENT
  Age: 69 Year
  Sex: Female
  Weight: 74.84 kg

DRUGS (2)
  1. REVLIMID [Suspect]
     Indication: PLASMA CELL MYELOMA
     Dosage: 21 IN 21 D
     Route: 048
     Dates: start: 20101216
  2. DEXAMETHASONE [Concomitant]

REACTIONS (3)
  - Dry skin [None]
  - Cataract [None]
  - Plasma cell myeloma [None]
